FAERS Safety Report 6833002-6 (Version None)
Quarter: 2010Q3

REPORT INFORMATION
  Report Type: 
  Country: None (occurrence: None)
  Receive Date: 20100712
  Receipt Date: 20100602
  Transmission Date: 20110219
  Serious: No
  Sender: FDA-Public Use
  Company Number: US-BIOGENIDEC-2010BI018459

PATIENT
  Sex: Female

DRUGS (2)
  1. AVONEX [Suspect]
     Indication: MULTIPLE SCLEROSIS
     Route: 030
     Dates: start: 20020901, end: 20040405
  2. AVONEX [Suspect]
     Route: 030
     Dates: start: 20050405

REACTIONS (4)
  - ASTHENIA [None]
  - FUNGAL INFECTION [None]
  - MOBILITY DECREASED [None]
  - MUSCULAR WEAKNESS [None]
